FAERS Safety Report 19991308 (Version 1)
Quarter: 2021Q4

REPORT INFORMATION
  Report Type: Spontaneous
  Country: GD (occurrence: GD)
  Receive Date: 20211025
  Receipt Date: 20211025
  Transmission Date: 20220303
  Serious: No
  Sender: FDA-Public Use
  Company Number: GD-LUPIN PHARMACEUTICALS INC.-2021-20426

PATIENT
  Age: 31 Year
  Sex: Female

DRUGS (2)
  1. METHYLERGONOVINE [Suspect]
     Active Substance: METHYLERGONOVINE
     Indication: Uterine atony
     Dosage: 0.2 MILLIGRAM
     Route: 030
  2. EPINEPHRINE HYDROCHLORIDE\LIDOCAINE HYDROCHLORIDE [Suspect]
     Active Substance: EPINEPHRINE HYDROCHLORIDE\LIDOCAINE HYDROCHLORIDE
     Indication: Epidural anaesthesia
     Dosage: A BOLUS OF 16 ML 2%
     Route: 008

REACTIONS (1)
  - Maternal exposure during delivery [Unknown]
